FAERS Safety Report 8577303-2 (Version None)
Quarter: 2012Q3

REPORT INFORMATION
  Report Type: 
  Country: None (occurrence: None)
  Receive Date: 20120807
  Receipt Date: 20120725
  Transmission Date: 20120928
  Serious: No
  Sender: FDA-Public Use
  Company Number: US-ASTRAZENECA-2012SE52681

PATIENT
  Age: 34 Year
  Sex: Female

DRUGS (4)
  1. SYNTHROID [Concomitant]
  2. SINGULAIR [Concomitant]
  3. NEXIUM [Suspect]
     Indication: GASTROOESOPHAGEAL REFLUX DISEASE
     Route: 048
     Dates: start: 20120717, end: 20120724
  4. ZYRTEC [Concomitant]

REACTIONS (5)
  - DRUG DOSE OMISSION [None]
  - PAIN [None]
  - DYSPEPSIA [None]
  - LOCAL SWELLING [None]
  - NECK PAIN [None]
